FAERS Safety Report 13959240 (Version 1)
Quarter: 2017Q3

REPORT INFORMATION
  Report Type: Spontaneous
  Country: US (occurrence: US)
  Receive Date: 20170911
  Receipt Date: 20170911
  Transmission Date: 20171128
  Serious: Yes (Other)
  Sender: FDA-Public Use
  Company Number: None

PATIENT
  Age: 63 Year
  Sex: Male
  Weight: 80.55 kg

DRUGS (15)
  1. TRIUMEQ [Concomitant]
     Active Substance: ABACAVIR SULFATE\DOLUTEGRAVIR SODIUM\LAMIVUDINE
  2. METOPROLOL TARTRATE. [Concomitant]
     Active Substance: METOPROLOL TARTRATE
  3. ATORVASTATIN [Concomitant]
     Active Substance: ATORVASTATIN
  4. OMEGA-3 ETHYL ESTERS 1 GM [Concomitant]
     Active Substance: OMEGA-3-ACID ETHYL ESTERS
  5. INCRUSE ELLIPTA [Concomitant]
     Active Substance: UMECLIDINIUM BROMIDE
  6. NOVOLOG [Concomitant]
     Active Substance: INSULIN ASPART
  7. NEUROTIN [Concomitant]
     Active Substance: GABAPENTIN
  8. OXYCODONE [Concomitant]
     Active Substance: OXYCODONE
  9. LEVEMIR [Concomitant]
     Active Substance: INSULIN DETEMIR
  10. DOXAZOSIN [Concomitant]
     Active Substance: DOXAZOSIN\DOXAZOSIN MESYLATE
  11. MONTELUKAST [Concomitant]
     Active Substance: MONTELUKAST SODIUM
  12. TRADJENTA [Suspect]
     Active Substance: LINAGLIPTIN
     Indication: DIABETES MELLITUS
     Route: 048
     Dates: start: 20170509, end: 20170526
  13. LISINOPRIL. [Concomitant]
     Active Substance: LISINOPRIL
  14. GLIPIZIDE ER [Concomitant]
     Active Substance: GLIPIZIDE
  15. NIFEDICAL XL [Concomitant]
     Active Substance: NIFEDIPINE

REACTIONS (2)
  - Dizziness [None]
  - Speech disorder [None]

NARRATIVE: CASE EVENT DATE: 20170509
